FAERS Safety Report 17051588 (Version 1)
Quarter: 2019Q4

REPORT INFORMATION
  Report Type: Other
  Country: GB (occurrence: GB)
  Receive Date: 20191120
  Receipt Date: 20191120
  Transmission Date: 20200122
  Serious: Yes (Other)
  Sender: FDA-Public Use
  Company Number: GB-EMCURE PHARMACEUTICALS LTD-2019-EPL-1078

PATIENT
  Age: 39 Year
  Sex: Female
  Weight: 107.95 kg

DRUGS (3)
  1. TRANEXAMIC ACID. [Suspect]
     Active Substance: TRANEXAMIC ACID
     Indication: MENORRHAGIA
     Dosage: 1 TABLET 3 TIMES A DAY
     Route: 048
     Dates: start: 20190303, end: 20190704
  2. FERROUS FUMARATE [Concomitant]
     Active Substance: FERROUS FUMARATE
  3. NORETHISTERONE [Concomitant]
     Active Substance: NORETHINDRONE

REACTIONS (3)
  - Thrombosis [Unknown]
  - Pain [Recovered/Resolved]
  - Drug ineffective [Unknown]

NARRATIVE: CASE EVENT DATE: 20190305
